FAERS Safety Report 7289893-0 (Version None)
Quarter: 2011Q1

REPORT INFORMATION
  Report Type: 
  Country: None (occurrence: None)
  Receive Date: 20110126
  Receipt Date: 20110113
  Transmission Date: 20110831
  Serious: Yes (Death, Hospitalization)
  Sender: FDA-Public Use
  Company Number: 2011GW000025

PATIENT
  Age: 89 Year
  Sex: Male

DRUGS (1)
  1. ZYCLARA [Suspect]
     Indication: ACTINIC KERATOSIS
     Dosage: 3.75 PCT;QD;TOP
     Route: 061

REACTIONS (1)
  - NASOPHARYNGITIS [None]
